FAERS Safety Report 7306646-5 (Version None)
Quarter: 2011Q1

REPORT INFORMATION
  Report Type: 
  Country: None (occurrence: None)
  Receive Date: 20110209
  Receipt Date: 20110125
  Transmission Date: 20110831
  Serious: Yes (Hospitalization)
  Sender: FDA-Public Use
  Company Number: CTI_01282_2010

PATIENT
  Age: 17 Year
  Sex: Male
  Weight: 21.3 kg

DRUGS (7)
  1. ELECTROLYTE GRANULES [Concomitant]
  2. CEFDITOREN PIVOXIL (MEIACT MS (CEFDITOREN PIVOXIL)) [Suspect]
     Indication: PYREXIA
     Dosage: (250 MG ORAL) ; (250 MG ORAL) ; (250 MG ORAL)
     Route: 048
     Dates: start: 20101129, end: 20101201
  3. CEFDITOREN PIVOXIL (MEIACT MS (CEFDITOREN PIVOXIL)) [Suspect]
     Indication: INFECTION
     Dosage: (250 MG ORAL) ; (250 MG ORAL) ; (250 MG ORAL)
     Route: 048
     Dates: start: 20101129, end: 20101201
  4. CEFDITOREN PIVOXIL (MEIACT MS (CEFDITOREN PIVOXIL)) [Suspect]
     Indication: PYREXIA
     Dosage: (250 MG ORAL) ; (250 MG ORAL) ; (250 MG ORAL)
     Route: 048
     Dates: start: 20101202, end: 20101203
  5. CEFDITOREN PIVOXIL (MEIACT MS (CEFDITOREN PIVOXIL)) [Suspect]
     Indication: INFECTION
     Dosage: (250 MG ORAL) ; (250 MG ORAL) ; (250 MG ORAL)
     Route: 048
     Dates: start: 20101202, end: 20101203
  6. CEFDITOREN PIVOXIL (MEIACT MS (CEFDITOREN PIVOXIL)) [Suspect]
     Indication: PYREXIA
     Dosage: (250 MG ORAL) ; (250 MG ORAL) ; (250 MG ORAL)
     Route: 048
     Dates: start: 20101115, end: 20101117
  7. CEFDITOREN PIVOXIL (MEIACT MS (CEFDITOREN PIVOXIL)) [Suspect]
     Indication: INFECTION
     Dosage: (250 MG ORAL) ; (250 MG ORAL) ; (250 MG ORAL)
     Route: 048
     Dates: start: 20101115, end: 20101117

REACTIONS (3)
  - VITAMIN K DEFICIENCY [None]
  - HAEMATEMESIS [None]
  - HAEMOGLOBIN DECREASED [None]
